FAERS Safety Report 7706713-8 (Version None)
Quarter: 2011Q3

REPORT INFORMATION
  Report Type: 
  Country: None (occurrence: None)
  Receive Date: 20110804
  Receipt Date: 20110701
  Transmission Date: 20111222
  Serious: No
  Sender: FDA-Public Use
  Company Number: 2011-10015

PATIENT
  Age: 42 Year
  Sex: Male
  Weight: 86.2 kg

DRUGS (1)
  1. RAPAFLO [Suspect]
     Indication: BENIGN PROSTATIC HYPERPLASIA
     Dosage: IN JANUARY 2011 TOOK FOR THREE DAYS AND THEN STOPPED FOR A WEEK AND RESTARTED FOR A DAY AND STOPPED,
     Route: 048
     Dates: start: 20110101

REACTIONS (2)
  - BACK PAIN [None]
  - RENAL PAIN [None]
